FAERS Safety Report 5308207-6 (Version None)
Quarter: 2007Q2

REPORT INFORMATION
  Report Type: 
  Country: None (occurrence: None)
  Receive Date: 20070426
  Receipt Date: 20070418
  Transmission Date: 20071010
  Serious: Yes (Other)
  Sender: FDA-Public Use
  Company Number: ESWYE260629MAR07

PATIENT
  Sex: Female
  Weight: 90 kg

DRUGS (4)
  1. VANDRAL RETARD [Suspect]
     Indication: FIBROMYALGIA
     Route: 048
     Dates: start: 20070317, end: 20070322
  2. GELOCATIL [Concomitant]
     Dosage: UNKNOWN
     Dates: start: 20061005, end: 20070326
  3. TRAMADOL HCL [Concomitant]
     Dosage: UNKNOWN
     Dates: start: 20061005, end: 20070326
  4. PAROXETINE [Concomitant]
     Route: 048
     Dates: end: 20070316

REACTIONS (7)
  - BLOOD LACTIC ACID INCREASED [None]
  - DISCOMFORT [None]
  - HEPATITIS [None]
  - NAUSEA [None]
  - PRURITUS [None]
  - SWELLING FACE [None]
  - VOMITING [None]
